FAERS Safety Report 8048357 (Version 3)
Quarter: 2013Q2

REPORT INFORMATION
  Report Type: Report from Study
  Country: NZ (occurrence: NZ)
  Receive Date: 20110721
  Receipt Date: 20130401
  Transmission Date: 20140414
  Serious: Yes (Hospitalization)
  Sender: FDA-Public Use
  Company Number: PHHO2011NZ11333

PATIENT
  Age: 67 Year
  Sex: Male
  Weight: 76.5 kg

DRUGS (4)
  1. RAD 666 / RAD 001A [Suspect]
     Indication: METASTATIC RENAL CELL CARCINOMA
     Dosage: 10 MG, QD
     Route: 048
     Dates: start: 20110602, end: 20110612
  2. HUMALOG [Concomitant]
     Dosage: 20 U, TID
     Route: 058
  3. METFORMIN [Concomitant]
     Dosage: 750 MG, BID
     Route: 048
  4. CITALOPRAM [Concomitant]
     Indication: ANXIETY
     Dosage: 6 MG, DAILY
     Route: 048

REACTIONS (4)
  - Pulmonary oedema [Recovered/Resolved with Sequelae]
  - Lobar pneumonia [Recovered/Resolved with Sequelae]
  - Lower respiratory tract infection [Recovered/Resolved with Sequelae]
  - Pulmonary embolism [Recovered/Resolved with Sequelae]
